FAERS Safety Report 4585350-0 (Version None)
Quarter: 2005Q1

REPORT INFORMATION
  Report Type: 
  Country: None (occurrence: None)
  Receive Date: 20050214
  Receipt Date: 20050204
  Transmission Date: 20050727
  Serious: Yes (Hospitalization)
  Sender: FDA-Public Use
  Company Number: PERC20050008

PATIENT
  Age: 65 Year
  Sex: Male

DRUGS (3)
  1. PERCOCET [Suspect]
     Indication: PAIN
     Dosage: PO
     Route: 048
     Dates: end: 20040901
  2. GEMCITABINE [Concomitant]
  3. PEMETREXED [Concomitant]

REACTIONS (4)
  - CONDITION AGGRAVATED [None]
  - MYOCLONUS [None]
  - NEUROPATHY PERIPHERAL [None]
  - PARAESTHESIA [None]
